FAERS Safety Report 5578310-4 (Version None)
Quarter: 2007Q4

REPORT INFORMATION
  Report Type: 
  Country: None (occurrence: None)
  Receive Date: 20071130
  Receipt Date: 20070629
  Transmission Date: 20080405
  Serious: No
  Sender: FDA-Public Use
  Company Number: US200707000966

PATIENT
  Age: 47 Year
  Sex: Female

DRUGS (2)
  1. BYETTA [Suspect]
     Dosage: SUBCUTANEOUS
     Route: 058
  2. INSULIN (INSULIN) [Concomitant]

REACTIONS (3)
  - DIARRHOEA [None]
  - HYPOGLYCAEMIA [None]
  - NAUSEA [None]
